FAERS Safety Report 4442033-5 (Version None)
Quarter: 2004Q3

REPORT INFORMATION
  Report Type: 
  Country: None (occurrence: None)
  Receive Date: 20040901
  Receipt Date: 20040817
  Transmission Date: 20050211
  Serious: Yes (Death, Hospitalization)
  Sender: FDA-Public Use
  Company Number: 1999-BL-00042

PATIENT
  Age: 31 Year
  Sex: Female

DRUGS (3)
  1. VIRAMUNE [Suspect]
     Indication: HIV INFECTION
     Dosage: 200 MG (200 MG, ONCE DAILY) PO
     Route: 048
     Dates: start: 19990730, end: 19990831
  2. ZIDOVUDINE (ZIDOVUDINE) (TA) [Concomitant]
  3. LAMIVUDINE (LAMIVUDINE) (TA) [Concomitant]

REACTIONS (15)
  - DRUG ERUPTION [None]
  - DRUG EXPOSURE DURING PREGNANCY [None]
  - DRUG TOXICITY [None]
  - ENCEPHALOPATHY [None]
  - HEPATIC FAILURE [None]
  - HEPATIC NECROSIS [None]
  - HEPATIC STEATOSIS [None]
  - HEPATITIS FULMINANT [None]
  - INFLUENZA LIKE ILLNESS [None]
  - INTRA-UTERINE DEATH [None]
  - MATERNAL DEATH AFFECTING FOETUS [None]
  - PANCREATIC HAEMORRHAGE [None]
  - PANCREATITIS ACUTE [None]
  - PYREXIA [None]
  - RASH [None]
